FAERS Safety Report 4362813-4 (Version None)
Quarter: 2004Q2

REPORT INFORMATION
  Report Type: 
  Country: None (occurrence: None)
  Receive Date: 20040518
  Receipt Date: 20040504
  Transmission Date: 20050107
  Serious: Yes (Death)
  Sender: FDA-Public Use
  Company Number: 04P-163-0259601-00

PATIENT
  Age: 33 Year
  Sex: Male
  Weight: 94.3482 kg

DRUGS (3)
  1. VICODIN [Suspect]
     Dosage: 10 MG, ORAL
     Route: 048
     Dates: end: 20030802
  2. TRAMADOL HYDROCHLORIDE [Concomitant]
  3. CARISOPRODOL [Concomitant]

REACTIONS (2)
  - BLOOD ALCOHOL INCREASED [None]
  - DRUG TOXICITY [None]
